FAERS Safety Report 25866791 (Version 4)
Quarter: 2025Q4

REPORT INFORMATION
  Report Type: Spontaneous
  Country: US (occurrence: US)
  Receive Date: 20250930
  Receipt Date: 20251128
  Transmission Date: 20260117
  Serious: No
  Sender: CIPLA
  Company Number: US-CIPLA LTD.-2025US11816

PATIENT

DRUGS (4)
  1. ALBUTEROL [Suspect]
     Active Substance: ALBUTEROL
     Indication: Product used for unknown indication
     Dosage: UNK, PRN (1 TO 2 PUFFS EVERY 4 TO 6 HOURS AS NEEDED) (REGULAR USER)
     Dates: start: 2024
  2. ALBUTEROL [Suspect]
     Active Substance: ALBUTEROL
     Dosage: UNK, PRN (1 TO 2 PUFFS EVERY 4 TO 6 HOURS AS NEEDED)
     Dates: start: 20250219
  3. ALBUTEROL [Suspect]
     Active Substance: ALBUTEROL
     Dosage: UNK, PRN (1 TO 2 PUFFS EVERY 4 TO 6 HOURS AS NEEDED)
     Dates: start: 202508
  4. ALBUTEROL [Suspect]
     Active Substance: ALBUTEROL
     Dosage: UNK, PRN (1 TO 2 PUFFS EVERY 4 TO 6 HOURS AS NEEDED)
     Dates: start: 20250914, end: 2025

REACTIONS (3)
  - Dyspnoea [Unknown]
  - Drug dose omission by device [Unknown]
  - Device delivery system issue [Unknown]

NARRATIVE: CASE EVENT DATE: 20250101
